FAERS Safety Report 17666777 (Version 2)
Quarter: 2020Q2

REPORT INFORMATION
  Report Type: Spontaneous
  Country: FR (occurrence: FR)
  Receive Date: 20200414
  Receipt Date: 20200421
  Transmission Date: 20200713
  Serious: Yes (Hospitalization, Other)
  Sender: FDA-Public Use
  Company Number: FR-CELGENEUS-FRA-20200401760

PATIENT
  Age: 66 Year
  Sex: Female

DRUGS (2)
  1. IDHIFA [Suspect]
     Active Substance: ENASIDENIB MESYLATE
     Indication: ACUTE MYELOID LEUKAEMIA
     Dosage: 100 MILLIGRAM
     Route: 048
     Dates: start: 20171122
  2. URSODESOXYCHOLIC ACID [Concomitant]
     Active Substance: URSODIOL
     Indication: CHOLESTASIS
     Dosage: 750 MILLIGRAM
     Route: 048
     Dates: start: 201801

REACTIONS (3)
  - Respiratory distress [Unknown]
  - Cholestasis [Unknown]
  - Coronavirus infection [Recovered/Resolved with Sequelae]

NARRATIVE: CASE EVENT DATE: 20200320
